FAERS Safety Report 7075374-6 (Version None)
Quarter: 2010Q4

REPORT INFORMATION
  Report Type: 
  Country: None (occurrence: None)
  Receive Date: 20101030
  Receipt Date: 20100902
  Transmission Date: 20110411
  Serious: No
  Sender: FDA-Public Use
  Company Number: US-WYE-H17326810

PATIENT
  Age: 86 Year
  Sex: Female
  Weight: 69.92 kg

DRUGS (5)
  1. ADVIL PM [Suspect]
     Indication: ARTHRALGIA
     Route: 048
     Dates: start: 20100901, end: 20100901
  2. ADVIL PM [Suspect]
     Indication: INSOMNIA
  3. LEVOTHYROXINE [Concomitant]
  4. PREMARIN [Concomitant]
  5. DIOVAN [Concomitant]

REACTIONS (2)
  - DIZZINESS [None]
  - PRODUCT CLOSURE ISSUE [None]
